FAERS Safety Report 12184884 (Version 3)
Quarter: 2016Q3

REPORT INFORMATION
  Report Type: Spontaneous
  Country: US (occurrence: US)
  Receive Date: 20160316
  Receipt Date: 20160718
  Transmission Date: 20161109
  Serious: Yes (Other)
  Sender: FDA-Public Use
  Company Number: US-TEVA-642641ACC

PATIENT
  Sex: Female

DRUGS (1)
  1. PARAGARD T 380A [Suspect]
     Active Substance: COPPER
     Indication: CONTRACEPTION
     Route: 065
     Dates: start: 20060525, end: 20151218

REACTIONS (4)
  - Panic reaction [Unknown]
  - Complication associated with device [Recovered/Resolved]
  - Activities of daily living impaired [Unknown]
  - Device breakage [Recovered/Resolved]
